FAERS Safety Report 15855803 (Version 1)
Quarter: 2019Q1

REPORT INFORMATION
  Report Type: Other
  Country: None (occurrence: FR)
  Receive Date: 20190122
  Receipt Date: 20190122
  Transmission Date: 20190417
  Serious: Yes (Other)
  Sender: FDA-Public Use
  Company Number: FR-POPULATION COUNCIL, INC.-2061588

PATIENT
  Sex: Female

DRUGS (1)
  1. NORPLANT [Suspect]
     Active Substance: LEVONORGESTREL

REACTIONS (2)
  - Genital haemorrhage [None]
  - Anaemia [None]
